FAERS Safety Report 17284294 (Version 1)
Quarter: 2020Q1

REPORT INFORMATION
  Report Type: Report from Study
  Country: US (occurrence: US)
  Receive Date: 20200117
  Receipt Date: 20200117
  Transmission Date: 20200409
  Serious: Yes (Hospitalization)
  Sender: FDA-Public Use
  Company Number: US-ASTRAZENECA-2020SE06902

PATIENT
  Sex: Female

DRUGS (2)
  1. LYNPARZA [Suspect]
     Active Substance: OLAPARIB
     Route: 048
  2. LYNPARZA [Suspect]
     Active Substance: OLAPARIB
     Route: 048

REACTIONS (5)
  - Incorrect dosage administered [Unknown]
  - Depressed mood [Unknown]
  - Tearfulness [Unknown]
  - Intestinal obstruction [Unknown]
  - Product dose omission [Unknown]
